FAERS Safety Report 8146976-0 (Version None)
Quarter: 2012Q1

REPORT INFORMATION
  Report Type: 
  Country: None (occurrence: None)
  Receive Date: 20120217
  Receipt Date: 20120209
  Transmission Date: 20120608
  Serious: Yes (Other)
  Sender: FDA-Public Use
  Company Number: US-ASTRAZENECA-2012SE09141

PATIENT
  Age: 26854 Day
  Sex: Female

DRUGS (11)
  1. ASPIRIN [Concomitant]
     Indication: ANXIETY
  2. MULTIVITAMINS OTC [Concomitant]
  3. NEXIUM [Concomitant]
     Route: 048
  4. NIACIN [Concomitant]
     Indication: BLOOD CHOLESTEROL ABNORMAL
  5. ZEBETA [Concomitant]
     Indication: BLOOD PRESSURE ABNORMAL
  6. CRESTOR [Suspect]
     Route: 048
     Dates: start: 20050101
  7. CRESTOR [Suspect]
     Route: 048
  8. CRESTOR [Suspect]
     Route: 048
     Dates: start: 20120123
  9. VALIUM [Concomitant]
     Indication: ANXIETY
  10. EFFIENT [Concomitant]
     Indication: BLOOD DISORDER
  11. GARLIC [Concomitant]

REACTIONS (15)
  - MIGRAINE [None]
  - ASTHENIA [None]
  - PAIN IN EXTREMITY [None]
  - URINE OUTPUT DECREASED [None]
  - CONVULSION [None]
  - COLITIS ISCHAEMIC [None]
  - NAUSEA [None]
  - FAECALOMA [None]
  - DIARRHOEA [None]
  - DRY SKIN [None]
  - PHOTOPHOBIA [None]
  - MYALGIA [None]
  - WRONG TECHNIQUE IN DRUG USAGE PROCESS [None]
  - HEADACHE [None]
  - CONSTIPATION [None]
